FAERS Safety Report 9949381 (Version 2)
Quarter: 2014Q1

REPORT INFORMATION
  Report Type: Report from Study
  Country: BR (occurrence: BR)
  Receive Date: 20140304
  Receipt Date: 20140328
  Transmission Date: 20141002
  Serious: Yes (Hospitalization)
  Sender: FDA-Public Use
  Company Number: BR-PFIZER INC-2014052008

PATIENT
  Age: 77 Year
  Sex: Female

DRUGS (7)
  1. EXEMESTANE [Suspect]
     Indication: BREAST CANCER METASTATIC
     Dosage: 25 MG, DAILY
     Route: 048
     Dates: start: 20140210, end: 20140216
  2. LAPATINIB [Suspect]
     Indication: BREAST CANCER METASTATIC
     Dosage: 1500 MG, DAILY
     Route: 048
     Dates: start: 20140210, end: 20140216
  3. ATENOLOL [Concomitant]
     Dosage: UNK
     Dates: start: 2003
  4. DIAZEPAM [Concomitant]
     Dosage: UNK
     Dates: start: 201212
  5. OMEPRAZOLE [Concomitant]
     Dosage: UNK
     Dates: start: 20130305
  6. LOPERAMIDE HYDROCHLORIDE [Concomitant]
     Dosage: UNK
     Dates: start: 20140211
  7. ONDASETRON [Concomitant]
     Dosage: UNK
     Dates: start: 20140214

REACTIONS (1)
  - Renal failure acute [Recovered/Resolved]
